FAERS Safety Report 11947051 (Version 1)
Quarter: 2016Q1

REPORT INFORMATION
  Report Type: Spontaneous
  Country: FR (occurrence: FR)
  Receive Date: 20160125
  Receipt Date: 20160125
  Transmission Date: 20160526
  Serious: Yes (Hospitalization)
  Sender: FDA-Public Use
  Company Number: FR-SA-2016SA008931

PATIENT
  Age: 42 Year
  Sex: Female

DRUGS (8)
  1. BREXINE [Suspect]
     Active Substance: PIROXICAM BETADEX
     Indication: PAIN
     Route: 048
     Dates: start: 20150910, end: 20150910
  2. CLIMASTON [Suspect]
     Active Substance: ESTRADIOL\PROGESTERONE
     Indication: PREMATURE MENOPAUSE
     Route: 048
     Dates: start: 20150825, end: 20150911
  3. STABLON [Concomitant]
     Active Substance: TIANEPTINE
  4. NUROFEN [Suspect]
     Active Substance: IBUPROFEN
     Indication: PAIN
     Route: 048
     Dates: start: 20150905, end: 20150909
  5. LOVENOX [Suspect]
     Active Substance: ENOXAPARIN SODIUM
     Indication: DEEP VEIN THROMBOSIS
     Route: 058
     Dates: start: 20150912, end: 20150915
  6. ACUPAN [Suspect]
     Active Substance: NEFOPAM HYDROCHLORIDE
     Indication: PAIN
     Route: 042
     Dates: start: 20150911, end: 20150911
  7. LAMALINE [Suspect]
     Active Substance: ACETAMINOPHEN\CAFFEINE\OPIUM
     Indication: PAIN
     Route: 048
     Dates: start: 20150910, end: 20150910
  8. RELPAX [Concomitant]
     Active Substance: ELETRIPTAN HYDROBROMIDE

REACTIONS (1)
  - Hepatitis [Recovered/Resolved]

NARRATIVE: CASE EVENT DATE: 20150915
